FAERS Safety Report 19984100 (Version 1)
Quarter: 2021Q4

REPORT INFORMATION
  Report Type: Report from Study
  Country: US (occurrence: US)
  Receive Date: 20211022
  Receipt Date: 20211022
  Transmission Date: 20220304
  Serious: Yes (Hospitalization, Other)
  Sender: FDA-Public Use
  Company Number: US-BRISTOL-MYERS SQUIBB COMPANY-BMS-2021-108729

PATIENT
  Age: 63 Year
  Sex: Female
  Weight: 75.8 kg

DRUGS (3)
  1. NIVOLUMAB [Suspect]
     Active Substance: NIVOLUMAB
     Indication: Non-small cell lung cancer stage IV
     Dosage: 240 MILLIGRAM, Q2WK
     Route: 042
     Dates: start: 20200904
  2. IPILIMUMAB [Suspect]
     Active Substance: IPILIMUMAB
     Indication: Non-small cell lung cancer stage IV
     Dosage: 1 MILLIGRAM/KILOGRAM, Q6WK
     Route: 042
     Dates: start: 20210904
  3. OXALIPLATIN [Suspect]
     Active Substance: OXALIPLATIN
     Indication: Non-small cell lung cancer stage IV
     Dosage: 65 MILLIGRAM/SQ. METER, Q2WK
     Route: 065
     Dates: start: 20210517

REACTIONS (4)
  - Sepsis [Unknown]
  - Chest pain [Unknown]
  - Dyspnoea exertional [Not Recovered/Not Resolved]
  - Urinary tract infection [Unknown]

NARRATIVE: CASE EVENT DATE: 20210519
